FAERS Safety Report 5938207-4 (Version None)
Quarter: 2008Q4

REPORT INFORMATION
  Report Type: 
  Country: None (occurrence: None)
  Receive Date: 20081031
  Receipt Date: 20081020
  Transmission Date: 20090506
  Serious: Yes (Other)
  Sender: FDA-Public Use
  Company Number: US-PFIZER INC-2008089058

PATIENT
  Sex: Female
  Weight: 68.9 kg

DRUGS (6)
  1. CHANTIX [Suspect]
     Indication: SMOKING CESSATION THERAPY
     Route: 048
     Dates: start: 20081003, end: 20081012
  2. THYROID TAB [Concomitant]
  3. VERAPAMIL [Concomitant]
  4. WARFARIN SODIUM [Concomitant]
  5. DRUG, UNSPECIFIED [Concomitant]
     Indication: THYROID DISORDER
  6. ALL OTHER THERAPEUTIC PRODUCTS [Concomitant]
     Indication: RESTLESS LEGS SYNDROME

REACTIONS (14)
  - ARTHRALGIA [None]
  - BODY TEMPERATURE DECREASED [None]
  - CHILLS [None]
  - COLD SWEAT [None]
  - DYSURIA [None]
  - HEADACHE [None]
  - HYPERHIDROSIS [None]
  - HYPOTHERMIA [None]
  - LABORATORY TEST ABNORMAL [None]
  - MALAISE [None]
  - NAUSEA [None]
  - OXYGEN SATURATION DECREASED [None]
  - PAIN [None]
  - VOMITING [None]
